FAERS Safety Report 8310236-5 (Version None)
Quarter: 2012Q2

REPORT INFORMATION
  Report Type: 
  Country: None (occurrence: None)
  Receive Date: 20120425
  Receipt Date: 20120419
  Transmission Date: 20120825
  Serious: No
  Sender: FDA-Public Use
  Company Number: US-PFIZER INC-2012097732

PATIENT
  Sex: Female
  Weight: 91 kg

DRUGS (5)
  1. METFORMIN [Concomitant]
     Indication: TYPE 2 DIABETES MELLITUS
     Dosage: UNK
  2. DIOVAN HCT [Concomitant]
     Indication: HYPERTENSION
     Dosage: UNK
  3. NEURONTIN [Concomitant]
     Indication: NEUROPATHY PERIPHERAL
     Dosage: UNK
  4. NEURONTIN [Concomitant]
     Indication: NERVE INJURY
  5. LIPITOR [Suspect]
     Indication: BLOOD CHOLESTEROL INCREASED
     Dosage: 10 MG, 1X/DAY
     Route: 048
     Dates: start: 20110101, end: 20120201

REACTIONS (4)
  - DRUG HYPERSENSITIVITY [None]
  - GAIT DISTURBANCE [None]
  - HYPERSENSITIVITY [None]
  - MYALGIA [None]
